FAERS Safety Report 5660914-1 (Version None)
Quarter: 2008Q1

REPORT INFORMATION
  Report Type: 
  Country: None (occurrence: None)
  Receive Date: 20080311
  Receipt Date: 20080228
  Transmission Date: 20080703
  Serious: Yes (Death, Hospitalization)
  Sender: FDA-Public Use
  Company Number: FR-PFIZER INC-2008020396

PATIENT
  Sex: Male

DRUGS (9)
  1. SU-011,248 [Suspect]
     Indication: SQUAMOUS CELL CARCINOMA
     Dates: start: 20071022, end: 20071115
  2. ALL OTHER THERAPEUTIC PRODUCTS [Concomitant]
     Route: 048
  3. KARDEGIC [Concomitant]
     Route: 048
  4. SOLUPRED [Concomitant]
     Route: 048
  5. NEXIUM [Concomitant]
     Route: 048
  6. XANAX [Concomitant]
     Route: 048
  7. NEURONTIN [Concomitant]
     Route: 048
  8. EFFEXOR [Concomitant]
     Route: 048
  9. OXYNORM [Concomitant]
     Route: 048

REACTIONS (4)
  - DISEASE PROGRESSION [None]
  - FACE OEDEMA [None]
  - LOCALISED OEDEMA [None]
  - NEOPLASM MALIGNANT [None]
